FAERS Safety Report 7072295-X (Version None)
Quarter: 2010Q4

REPORT INFORMATION
  Report Type: 
  Country: None (occurrence: None)
  Receive Date: 20101029
  Receipt Date: 20100225
  Transmission Date: 20110411
  Serious: No
  Sender: FDA-Public Use
  Company Number: A0837736A

PATIENT
  Age: 82 Year
  Sex: Female

DRUGS (12)
  1. ADVAIR DISKUS 100/50 [Suspect]
     Indication: ASTHMA
     Route: 055
     Dates: start: 20080101
  2. ACIPHEX [Concomitant]
  3. COUMADIN [Concomitant]
  4. VERAPAMIL [Concomitant]
  5. ALPRAZOLAM [Concomitant]
  6. DIGOXIN [Concomitant]
  7. FLONASE [Concomitant]
  8. LASIX [Concomitant]
  9. SINGULAIR [Concomitant]
  10. XOPENEX [Concomitant]
  11. BEANO [Concomitant]
  12. CENTRUM [Concomitant]

REACTIONS (5)
  - DRUG INEFFECTIVE [None]
  - DYSPNOEA [None]
  - HYPERVENTILATION [None]
  - PRODUCT QUALITY ISSUE [None]
  - WHEEZING [None]
